FAERS Safety Report 5995030-2 (Version None)
Quarter: 2008Q4

REPORT INFORMATION
  Report Type: 
  Country: None (occurrence: None)
  Receive Date: 20081212
  Receipt Date: 20080919
  Transmission Date: 20090506
  Serious: No
  Sender: FDA-Public Use
  Company Number: US-ABBOTT-08P-163-0477557-00

PATIENT
  Sex: Female
  Weight: 234 kg

DRUGS (6)
  1. HUMIRA [Suspect]
     Indication: RHEUMATOID ARTHRITIS
     Dosage: 40MG, 40MG 1 WK LATER, THEN 40MG QOW
     Route: 058
     Dates: start: 20080901
  2. HUMIRA [Suspect]
     Dosage: 40MG, 40MG 1 WK LATER, THEN 40MG QOW
     Dates: start: 20070801, end: 20080101
  3. LEXAPRO [Concomitant]
     Indication: DEPRESSION
     Route: 048
     Dates: start: 20080901
  4. LEXAPRO [Concomitant]
  5. MELOXICAM [Concomitant]
     Indication: RHEUMATOID ARTHRITIS
     Route: 048
     Dates: start: 20080918
  6. TRIMIDOL [Concomitant]
     Indication: RHEUMATOID ARTHRITIS
     Dates: start: 20080918

REACTIONS (4)
  - ABDOMINAL DISTENSION [None]
  - ABDOMINAL PAIN [None]
  - ARTHRITIS [None]
  - DIARRHOEA [None]
